FAERS Safety Report 6314532-2 (Version None)
Quarter: 2009Q3

REPORT INFORMATION
  Report Type: 
  Country: None (occurrence: None)
  Receive Date: 20090819
  Receipt Date: 20090807
  Transmission Date: 20100115
  Serious: Yes (Hospitalization, Other)
  Sender: FDA-Public Use
  Company Number: PHHY2009GB30065

PATIENT
  Sex: Male

DRUGS (4)
  1. CLOZARIL [Suspect]
     Indication: SCHIZOPHRENIA
     Dosage: UNK
     Dates: start: 20080414
  2. CLOZARIL [Suspect]
     Dosage: 400 MG, QD
     Route: 048
     Dates: start: 20081006
  3. HYOSCINE HBR HYT [Concomitant]
     Dosage: 300 MG, BID
     Route: 048
     Dates: start: 20081210
  4. PROCYCLIDINE HYDROCHLORIDE 2MG TAB [Concomitant]
     Dosage: 5 MG, BID
     Route: 048
     Dates: start: 20080114

REACTIONS (5)
  - FEMUR FRACTURE [None]
  - HAEMOGLOBIN DECREASED [None]
  - INTERNAL FIXATION OF FRACTURE [None]
  - LOWER RESPIRATORY TRACT INFECTION [None]
  - TACHYCARDIA [None]
